FAERS Safety Report 24662271 (Version 8)
Quarter: 2025Q3

REPORT INFORMATION
  Report Type: Spontaneous
  Country: US (occurrence: US)
  Receive Date: 20241125
  Receipt Date: 20250818
  Transmission Date: 20251021
  Serious: Yes (Other)
  Sender: SUNOVION
  Company Number: US-SMPA-2024SPA005394AA

PATIENT
  Age: 62 Year
  Sex: Male

DRUGS (4)
  1. ORGOVYX [Suspect]
     Active Substance: RELUGOLIX
     Indication: Prostate cancer
     Dosage: 360 MG, SINGLE
     Route: 048
     Dates: start: 202410, end: 202410
  2. ORGOVYX [Suspect]
     Active Substance: RELUGOLIX
     Dosage: 120 MG, QD
     Route: 048
     Dates: start: 202410
  3. Mucinex fast max nite cold flu [Concomitant]
  4. BENADRYL [Concomitant]
     Active Substance: DIPHENHYDRAMINE HYDROCHLORIDE

REACTIONS (11)
  - Haematochezia [Unknown]
  - Toothache [Unknown]
  - Night sweats [Unknown]
  - Insomnia [Unknown]
  - Diarrhoea [Unknown]
  - Hyperhidrosis [Unknown]
  - Headache [Unknown]
  - Fatigue [Unknown]
  - Hot flush [Unknown]
  - Musculoskeletal pain [Unknown]
  - Therapy interrupted [Recovered/Resolved]
